FAERS Safety Report 8110603-9 (Version None)
Quarter: 2012Q1

REPORT INFORMATION
  Report Type: 
  Country: None (occurrence: None)
  Receive Date: 20120203
  Receipt Date: 20120130
  Transmission Date: 20120608
  Serious: No
  Sender: FDA-Public Use
  Company Number: US-PFIZER INC-2012026359

PATIENT
  Sex: Male

DRUGS (3)
  1. BACITRACIN-NEOMYCIN SULFATE-POLYMYXIN B SULFATE TOPICAL OINTMENT [Suspect]
  2. PENICILLIN G BENZATHINE AND PENICILLIN G PROCAINE [Suspect]
  3. MORPHINE SULFATE [Suspect]

REACTIONS (1)
  - DRUG HYPERSENSITIVITY [None]
